FAERS Safety Report 26215431 (Version 1)
Quarter: 2025Q4

REPORT INFORMATION
  Report Type: Spontaneous
  Country: US (occurrence: US)
  Receive Date: 20251231
  Receipt Date: 20251231
  Transmission Date: 20260117
  Serious: Yes (Hospitalization, Other)
  Sender: ARDELYX
  Company Number: US-ARDELYX-2025ARDX003679

PATIENT
  Sex: Female

DRUGS (2)
  1. IBSRELA [Suspect]
     Active Substance: TENAPANOR HYDROCHLORIDE
     Indication: Irritable bowel syndrome
     Dosage: 50 MG, BID [TAKING THE IBSRELA IMMEDIATELY PRIOR TO BREAKFAST AND DINNER]
     Route: 065
     Dates: start: 2025, end: 2025
  2. PANTOPRAZOLE [Concomitant]
     Active Substance: PANTOPRAZOLE
     Indication: Product used for unknown indication
     Dosage: UNK
     Route: 065

REACTIONS (5)
  - Ileus [Unknown]
  - Nausea [Unknown]
  - Abdominal pain upper [Unknown]
  - Condition aggravated [Unknown]
  - Drug ineffective [Unknown]
